FAERS Safety Report 5071661-1 (Version None)
Quarter: 2006Q3

REPORT INFORMATION
  Report Type: 
  Country: None (occurrence: None)
  Receive Date: 20060801
  Receipt Date: 20060720
  Transmission Date: 20061208
  Serious: Yes (Other)
  Sender: FDA-Public Use
  Company Number: 2006071816

PATIENT
  Age: 42 Year
  Sex: Female
  Weight: 50 kg

DRUGS (1)
  1. RELPAX [Suspect]
     Indication: MIGRAINE
     Dosage: 40 MG, ONCE DAILY AS NECESSARY
     Dates: start: 20020501

REACTIONS (2)
  - CONDITION AGGRAVATED [None]
  - MIGRAINE [None]
